FAERS Safety Report 7756669-7 (Version None)
Quarter: 2011Q3

REPORT INFORMATION
  Report Type: 
  Country: None (occurrence: None)
  Receive Date: 20110916
  Receipt Date: 20110908
  Transmission Date: 20111222
  Serious: Yes (Other)
  Sender: FDA-Public Use
  Company Number: FR-CELGENEUS-056-C5013-11090954

PATIENT
  Sex: Male
  Weight: 96 kg

DRUGS (19)
  1. LENALIDOMIDE [Suspect]
     Indication: PROSTATE CANCER
     Route: 048
     Dates: start: 20110222, end: 20110307
  2. DOCETAXEL [Suspect]
     Dosage: 6.1905 MILLIGRAM
     Route: 065
     Dates: start: 20110812, end: 20110812
  3. PREDNISOLONE [Concomitant]
     Indication: PREMEDICATION
     Dosage: D-1(40MG), D1(60MG) AND D+2(40MG): D1=DOCETAXEL PERFUSION
     Route: 048
     Dates: start: 20110317, end: 20110813
  4. DOCETAXEL [Suspect]
     Indication: PROSTATE CANCER
     Dosage: 7.619 MILLIGRAM
     Route: 065
     Dates: start: 20110222, end: 20110222
  5. PREDNISONE [Suspect]
     Indication: PROSTATE CANCER
     Dosage: 20 MILLIGRAM
     Route: 065
     Dates: start: 20110222, end: 20110316
  6. PREGABALIN [Concomitant]
     Dosage: 150 MILLIGRAM
     Route: 048
     Dates: start: 20091201
  7. PREGABALIN [Concomitant]
     Dosage: 100 MILLIGRAM
     Route: 048
  8. PREDNISONE [Suspect]
     Dosage: 20 MILLIGRAM
     Route: 065
     Dates: start: 20110812, end: 20110907
  9. PREGABALIN [Concomitant]
     Dosage: 200 MILLIGRAM
     Route: 048
     Dates: end: 20110731
  10. ACETAMINOPHEN AND TRAMADOL HCL [Concomitant]
     Indication: TUMOUR PAIN
     Route: 048
     Dates: start: 20091201
  11. SERETIDE [Concomitant]
     Dosage: 1000 MICROGRAM
     Route: 055
     Dates: start: 20110802
  12. OXAZEPAM [Concomitant]
     Indication: INSOMNIA
     Route: 048
     Dates: start: 20091201
  13. SYMBICORT [Concomitant]
     Route: 055
     Dates: start: 20110501, end: 20110801
  14. LENALIDOMIDE [Suspect]
     Dosage: 25 MILLIGRAM
     Route: 048
     Dates: start: 20110620, end: 20110623
  15. PREGABALIN [Concomitant]
     Dosage: 100 MILLIGRAM
     Route: 048
     Dates: start: 20110801
  16. GOSERELIN [Concomitant]
     Indication: PROSTATE CANCER
     Dosage: .12 MILLIGRAM
     Route: 058
     Dates: start: 20110101
  17. ACETAMINOPHEN [Concomitant]
     Indication: TUMOUR PAIN
     Route: 048
     Dates: start: 20090101
  18. ESOMEPRAZOLE SODIUM [Concomitant]
     Indication: PROPHYLAXIS
     Route: 048
     Dates: start: 20110317
  19. ZOPICLONE [Concomitant]
     Indication: INSOMNIA
     Route: 048
     Dates: start: 20110429

REACTIONS (1)
  - SUPERFICIAL SPREADING MELANOMA STAGE UNSPECIFIED [None]
